FAERS Safety Report 11837235 (Version 6)
Quarter: 2016Q1

REPORT INFORMATION
  Report Type: Spontaneous
  Country: US (occurrence: US)
  Receive Date: 20151215
  Receipt Date: 20160201
  Transmission Date: 20160525
  Serious: Yes (Hospitalization)
  Sender: FDA-Public Use
  Company Number: US-PFIZER INC-2015396759

PATIENT
  Age: 54 Year
  Sex: Male
  Weight: 94 kg

DRUGS (8)
  1. SUTENT [Suspect]
     Active Substance: SUNITINIB MALATE
     Dosage: 37.5 MG, UNK
     Dates: start: 20151215, end: 201601
  2. GABAPENTIN. [Concomitant]
     Active Substance: GABAPENTIN
     Dosage: UNK
  3. SUTENT [Suspect]
     Active Substance: SUNITINIB MALATE
     Dosage: 37.5 MG, DAILY
     Dates: start: 20151124, end: 20151203
  4. SENNA [Concomitant]
     Active Substance: SENNA LEAF\SENNOSIDES\SENNOSIDES A AND B
     Indication: FAECES HARD
     Dosage: UNK
  5. SUTENT [Suspect]
     Active Substance: SUNITINIB MALATE
     Indication: GASTROINTESTINAL STROMAL TUMOUR
     Dosage: 37.5 MG, DAILY
     Dates: start: 20150901, end: 20151110
  6. IBUPROFEN. [Concomitant]
     Active Substance: IBUPROFEN
     Dosage: UNK
  7. LANTUS [Concomitant]
     Active Substance: INSULIN GLARGINE
     Dosage: UNK
  8. MARINOL [Concomitant]
     Active Substance: DRONABINOL
     Dosage: UNK

REACTIONS (15)
  - Dizziness [Unknown]
  - Pain [Unknown]
  - Abdominal abscess [Unknown]
  - Nausea [Unknown]
  - Dysgeusia [Unknown]
  - Speech disorder [Unknown]
  - Vomiting [Unknown]
  - Large intestine perforation [Unknown]
  - Weight decreased [Unknown]
  - Abdominal pain upper [Unknown]
  - Dehydration [Unknown]
  - Diarrhoea [Unknown]
  - Appetite disorder [Unknown]
  - Eating disorder [Unknown]
  - Hiccups [Unknown]

NARRATIVE: CASE EVENT DATE: 2015
